FAERS Safety Report 4417911-3 (Version None)
Quarter: 2004Q2

REPORT INFORMATION
  Report Type: 
  Country: None (occurrence: None)
  Receive Date: 20040618
  Receipt Date: 20030804
  Transmission Date: 20050107
  Serious: Yes (Other)
  Sender: FDA-Public Use
  Company Number: 1-9595496

PATIENT
  Age: 43 Year
  Sex: Female

DRUGS (1)
  1. LIDEX CREAM 30 G [Suspect]
     Indication: ROSACEA
     Dosage: 2 X DAY CUTANEOUS
     Route: 003
     Dates: start: 20030701, end: 20030710

REACTIONS (3)
  - ACNE [None]
  - PRURITUS [None]
  - RASH [None]
